FAERS Safety Report 8026569 (Version 3)
Quarter: 2012Q4

REPORT INFORMATION
  Report Type: 
  Country: US (occurrence: US)
  Receive Date: 20110708
  Receipt Date: 20121102
  Transmission Date: 20130627
  Serious: Yes (Other)
  Sender: FDA-Public Use
  Company Number: US-ROCHE-787521

PATIENT
  Sex: Female

DRUGS (1)
  1. ACCUTANE [Suspect]
     Indication: ACNE
     Route: 065
     Dates: start: 19900521, end: 19901030

REACTIONS (5)
  - Colitis microscopic [Unknown]
  - Depression [Unknown]
  - Injury [Unknown]
  - Chapped lips [Unknown]
  - Irritable bowel syndrome [Unknown]
